APPROVED DRUG PRODUCT: VAPRISOL IN 5% DEXTROSE IN PLASTIC CONTAINER
Active Ingredient: CONIVAPTAN HYDROCHLORIDE
Strength: 20MG/100ML (0.2MG/ML)
Dosage Form/Route: INJECTABLE;INTRAVENOUS
Application: N021697 | Product #002
Applicant: CUMBERLAND PHARMACEUTICALS INC
Approved: Oct 8, 2008 | RLD: Yes | RS: Yes | Type: RX